FAERS Safety Report 5124167-5 (Version None)
Quarter: 2006Q4

REPORT INFORMATION
  Report Type: 
  Country: None (occurrence: None)
  Receive Date: 20061010
  Receipt Date: 20060606
  Transmission Date: 20070319
  Serious: No
  Sender: FDA-Public Use
  Company Number: US-BRISTOL-MYERS SQUIBB COMPANY-13403605

PATIENT
  Age: 62 Year
  Sex: Female

DRUGS (4)
  1. CAPTOPRIL [Suspect]
     Indication: HYPERTENSION
  2. AVAPRO [Suspect]
     Indication: HYPERTENSION
  3. TIAZAC [Concomitant]
  4. CLONIDINE [Concomitant]

REACTIONS (1)
  - BLOOD PRESSURE INADEQUATELY CONTROLLED [None]
